FAERS Safety Report 19463192 (Version 1)
Quarter: 2021Q2

REPORT INFORMATION
  Report Type: Spontaneous
  Country: JP (occurrence: JP)
  Receive Date: 20210625
  Receipt Date: 20210625
  Transmission Date: 20210717
  Serious: Yes (Other)
  Sender: FDA-Public Use
  Company Number: JP-GLAXOSMITHKLINE-JP2021128192

PATIENT
  Age: 38 Year
  Sex: Female

DRUGS (1)
  1. ZEJULA [Suspect]
     Active Substance: NIRAPARIB
     Indication: OVARIAN CANCER
     Dosage: 200 MILLIGRAM
     Route: 048
     Dates: start: 20210506, end: 20210610

REACTIONS (4)
  - Decreased appetite [Unknown]
  - Ovarian cancer [Unknown]
  - Metastases to lymph nodes [Unknown]
  - Disease progression [Unknown]

NARRATIVE: CASE EVENT DATE: 202105
